FAERS Safety Report 15717474 (Version 1)
Quarter: 2018Q4

REPORT INFORMATION
  Report Type: Spontaneous
  Country: US (occurrence: US)
  Receive Date: 20181213
  Receipt Date: 20181213
  Transmission Date: 20190205
  Serious: Yes (Other)
  Sender: FDA-Public Use
  Company Number: US-BAYER-2018-230009

PATIENT
  Age: 41 Year
  Sex: Female

DRUGS (4)
  1. MIRENA [Suspect]
     Active Substance: LEVONORGESTREL
     Indication: UTERINE HAEMORRHAGE
     Dosage: 20 MCG/24HR, CONT
     Route: 015
     Dates: start: 201810, end: 20181127
  2. MIRENA [Suspect]
     Active Substance: LEVONORGESTREL
     Indication: VAGINAL HAEMORRHAGE
  3. MIRENA [Suspect]
     Active Substance: LEVONORGESTREL
     Indication: VAGINAL HAEMORRHAGE
  4. MIRENA [Suspect]
     Active Substance: LEVONORGESTREL
     Indication: UTERINE HAEMORRHAGE

REACTIONS (6)
  - Genital haemorrhage [Recovered/Resolved]
  - Device expulsion [None]
  - Pain in extremity [None]
  - Product use in unapproved indication [None]
  - Deep vein thrombosis [None]
  - Off label use [None]

NARRATIVE: CASE EVENT DATE: 2018
